FAERS Safety Report 9605027 (Version 1)
Quarter: 2013Q4

REPORT INFORMATION
  Report Type: Spontaneous
  Country: US (occurrence: US)
  Receive Date: 20131008
  Receipt Date: 20131008
  Transmission Date: 20140711
  Serious: Yes (Other)
  Sender: FDA-Public Use
  Company Number: PHEH2013US020871

PATIENT
  Sex: Female

DRUGS (24)
  1. DIOVAN [Suspect]
     Dosage: 80 MG, QD
     Route: 048
  2. DIOVAN [Suspect]
     Dosage: UNK UKN, UNK
  3. ASA [Concomitant]
     Dosage: 81 MG, UNK
  4. BYSTOLIC [Concomitant]
     Dosage: 5 MG, UNK
  5. FUROSEMIDE [Concomitant]
     Dosage: 40 MG, UNK
  6. GLIPIZIDE XL [Concomitant]
     Dosage: 10 MG, UNK
  7. LANTUS [Concomitant]
     Dosage: 15 IU, UNK
  8. LORAZEPAM [Concomitant]
     Dosage: 1 MG, UNK
  9. MACRODANTIN [Concomitant]
     Dosage: 100 MG, UNK
  10. METFORMIN HCL [Concomitant]
     Dosage: 500 MG, UNK
  11. MYRBETRIQ [Concomitant]
     Dosage: 50 MG, UNK
  12. NITROGLYCERIN [Concomitant]
     Dosage: UNK UKN, PRN
  13. NEXIUM//ESOMEPRAZOLE SODIUM [Concomitant]
     Dosage: 40 MG, UNK
  14. PAXIL//PAROXETINE HYDROCHLORIDE [Concomitant]
     Dosage: 25 MG, UNK
  15. SYNTHROID [Concomitant]
     Dosage: 75 MG, UNK
  16. SENSODYNE [Concomitant]
     Dosage: UNK UKN, UNK
  17. TIMOLOL [Concomitant]
     Dosage: UNK UKN, UNK
  18. TOPROL [Concomitant]
     Dosage: 50 MG, UNK
  19. TRAMADOL [Concomitant]
     Dosage: 50 MG, UNK
  20. TYLENOL EXTRA STRENGTH [Concomitant]
     Dosage: UNK UKN, PRN
  21. VERAPAMIL HCL [Concomitant]
     Dosage: 240 MG, UNK
  22. VITAMIN E [Concomitant]
     Dosage: UNK UKN, UNK
  23. WELCHOL [Concomitant]
     Dosage: UNK UKN, UNK
  24. ZETIA [Concomitant]
     Dosage: UNK UKN, UNK

REACTIONS (6)
  - Myocardial infarction [Unknown]
  - Diabetes mellitus [Unknown]
  - Fall [Unknown]
  - Cerebral haemorrhage [Unknown]
  - Protein urine present [Unknown]
  - Blood pressure increased [Unknown]
